FAERS Safety Report 22964958 (Version 5)
Quarter: 2024Q2

REPORT INFORMATION
  Report Type: Spontaneous
  Country: JP (occurrence: JP)
  Receive Date: 20230921
  Receipt Date: 20240425
  Transmission Date: 20240716
  Serious: Yes (Hospitalization, Other)
  Sender: FDA-Public Use
  Company Number: JP-MSD-2306JPN001767J

PATIENT
  Age: 70 Year
  Sex: Female

DRUGS (1)
  1. KEYTRUDA [Suspect]
     Active Substance: PEMBROLIZUMAB
     Indication: Bladder cancer stage IV
     Dosage: 200 MILLIGRAM, Q3W
     Route: 041
     Dates: start: 20190320, end: 20211005

REACTIONS (2)
  - Keratitis [Recovering/Resolving]
  - Mucous membrane pemphigoid [Recovering/Resolving]

NARRATIVE: CASE EVENT DATE: 20211231
